FAERS Safety Report 10097927 (Version 2)
Quarter: 2014Q2

REPORT INFORMATION
  Report Type: Report from Study
  Country: FR (occurrence: FR)
  Receive Date: 20140423
  Receipt Date: 20140423
  Transmission Date: 20141212
  Serious: Yes (Hospitalization, Other)
  Sender: FDA-Public Use
  Company Number: FR-ROCHE-GNE250753

PATIENT
  Age: 25 Year
  Sex: Female

DRUGS (6)
  1. NUTROPIN AQ [Suspect]
     Indication: GROWTH HORMONE DEFICIENCY
     Dosage: 0.2 U, QD, DOSE=.2 U, DAILY DOSE=.2 U
     Route: 058
     Dates: start: 20060419
  2. ESTRADIOL [Concomitant]
     Indication: OVARIAN FAILURE
     Route: 048
  3. PROGESTERONE [Concomitant]
     Indication: OVARIAN FAILURE
     Route: 048
  4. LEVOTHYROX [Concomitant]
     Indication: HYPOTHYROIDISM
     Route: 048
  5. CALCIUM D3 [Concomitant]
     Indication: HYPOPARATHYROIDISM
     Route: 048
  6. ALLOPURINOL [Concomitant]
     Indication: PRODUCT USED FOR UNKNOWN INDICATION

REACTIONS (1)
  - Cardiac failure [Recovered/Resolved with Sequelae]
